FAERS Safety Report 20095950 (Version 3)
Quarter: 2022Q1

REPORT INFORMATION
  Report Type: Report from Study
  Country: US (occurrence: US)
  Receive Date: 20211122
  Receipt Date: 20220304
  Transmission Date: 20220424
  Serious: Yes (Death, Hospitalization)
  Sender: FDA-Public Use
  Company Number: US-HELSINN-2021US023671

PATIENT
  Age: 55 Year
  Sex: Male
  Weight: 59.41 kg

DRUGS (1)
  1. TRUSELTIQ [Suspect]
     Active Substance: INFIGRATINIB
     Dosage: 125 MG CAP, 21 DAYS ON, 7 DAYS OFF
     Route: 048
     Dates: start: 20210915

REACTIONS (12)
  - Death [Fatal]
  - Headache [Unknown]
  - Epistaxis [Unknown]
  - Nausea [Unknown]
  - Dehydration [Unknown]
  - Decreased appetite [Unknown]
  - Alopecia [Unknown]
  - Madarosis [Unknown]
  - Hypotrichosis [Unknown]
  - Dehydration [Recovering/Resolving]
  - Asthenia [Unknown]
  - Decubitus ulcer [Unknown]

NARRATIVE: CASE EVENT DATE: 20220106
